FAERS Safety Report 6428463-0 (Version None)
Quarter: 2009Q4

REPORT INFORMATION
  Report Type: 
  Country: None (occurrence: None)
  Receive Date: 20091105
  Receipt Date: 20091028
  Transmission Date: 20100525
  Serious: Yes (Other)
  Sender: FDA-Public Use
  Company Number: B0600806A

PATIENT
  Age: 50 Year
  Sex: Male

DRUGS (5)
  1. PAXIL [Suspect]
     Indication: DRUG USE FOR UNKNOWN INDICATION
     Dosage: 10MG PER DAY
     Route: 048
     Dates: start: 20090919, end: 20091019
  2. PAXIL [Suspect]
     Dosage: 30MG PER DAY
     Route: 048
     Dates: start: 20091020, end: 20091027
  3. PAXIL [Suspect]
     Dosage: 10MG PER DAY
     Route: 048
     Dates: start: 20091028
  4. RESLIN [Concomitant]
     Route: 048
  5. ROHYPNOL [Concomitant]
     Route: 048

REACTIONS (3)
  - ACTIVATION SYNDROME [None]
  - IRRITABILITY [None]
  - MOOD ALTERED [None]
